FAERS Safety Report 16466755 (Version 1)
Quarter: 2019Q2

REPORT INFORMATION
  Report Type: Report from Study
  Country: JP (occurrence: JP)
  Receive Date: 20190623
  Receipt Date: 20190623
  Transmission Date: 20190711
  Serious: Yes (Other)
  Sender: FDA-Public Use
  Company Number: JP-SECURA BIO, INC.-2019JP006240

PATIENT

DRUGS (10)
  1. FARYDAK [Suspect]
     Active Substance: PANOBINOSTAT
     Indication: PLASMA CELL MYELOMA
     Dosage: 20 MG, QD
     Route: 048
     Dates: start: 20151221, end: 20160113
  2. BORTEZOMIB. [Concomitant]
     Active Substance: BORTEZOMIB
     Dosage: UNK
     Dates: start: 20151221, end: 20160408
  3. ZOVIRAX [Concomitant]
     Active Substance: ACYCLOVIR
     Dosage: UNK
  4. BAKTAR [Concomitant]
     Active Substance: SULFAMETHOXAZOLE\TRIMETHOPRIM
     Dosage: UNK
     Dates: end: 20160314
  5. FARYDAK [Suspect]
     Active Substance: PANOBINOSTAT
     Dosage: 15 MG, DAILY
     Route: 048
     Dates: start: 20160126, end: 20160314
  6. DEXAMETHASONE SODIUM PHOSPHATE. [Concomitant]
     Active Substance: DEXAMETHASONE SODIUM PHOSPHATE
     Dosage: UNK
     Dates: start: 20151221, end: 20160408
  7. RIKKUNSHITO (CHINESE HERBAL MEDICINE) [Concomitant]
     Indication: PLASMA CELL MYELOMA
     Dosage: UNK UNK, DAILY
     Route: 048
     Dates: start: 20151230, end: 20160104
  8. DEXAMETHASONE. [Concomitant]
     Active Substance: DEXAMETHASONE
  9. PARIET [Concomitant]
     Active Substance: RABEPRAZOLE SODIUM
     Dosage: UNK
     Dates: end: 20160218
  10. FARYDAK [Suspect]
     Active Substance: PANOBINOSTAT
     Dosage: 10 MG, DAILY
     Route: 048
     Dates: start: 20160315, end: 20160408

REACTIONS (2)
  - Platelet count decreased [Recovered/Resolved]
  - Neuropathy peripheral [Not Recovered/Not Resolved]

NARRATIVE: CASE EVENT DATE: 20160102
